FAERS Safety Report 6701543-8 (Version None)
Quarter: 2010Q2

REPORT INFORMATION
  Report Type: 
  Country: None (occurrence: None)
  Receive Date: 20100429
  Receipt Date: 20100420
  Transmission Date: 20101027
  Serious: Yes (Hospitalization)
  Sender: FDA-Public Use
  Company Number: JP-JNJFOC-20100300195

PATIENT
  Sex: Female

DRUGS (12)
  1. CRAVIT [Suspect]
     Indication: ENTEROCOLITIS
     Route: 048
  2. LAC-B [Concomitant]
     Indication: ENTEROCOLITIS
     Route: 048
  3. DIASTASE [Concomitant]
     Indication: ENTEROCOLITIS
     Route: 048
  4. ATELEC [Concomitant]
     Indication: HYPERTENSION
     Route: 048
  5. ASPIRIN [Concomitant]
     Indication: ANGINA PECTORIS
     Route: 048
  6. BASEN [Concomitant]
     Indication: DIABETES MELLITUS
     Route: 048
  7. TAKEPRON [Concomitant]
     Indication: REFLUX OESOPHAGITIS
     Route: 048
  8. CARVEDILOL [Concomitant]
     Indication: ANGINA PECTORIS
     Route: 048
  9. DOXAZOSIN MESYLATE [Concomitant]
     Indication: HYPERTENSION
     Route: 048
  10. CRESTOR [Concomitant]
     Indication: HYPERLIPIDAEMIA
     Route: 048
  11. METHYCOBAL [Concomitant]
     Indication: OPTIC ISCHAEMIC NEUROPATHY
     Route: 048
  12. CARNACULIN [Concomitant]
     Indication: OPTIC ISCHAEMIC NEUROPATHY
     Route: 048

REACTIONS (3)
  - LEUKOPENIA [None]
  - NEPHROGENIC ANAEMIA [None]
  - NEPHROPATHY [None]
